FAERS Safety Report 25101214 (Version 2)
Quarter: 2025Q1

REPORT INFORMATION
  Report Type: Spontaneous
  Country: US (occurrence: None)
  Receive Date: 20250320
  Receipt Date: 20250328
  Transmission Date: 20250409
  Serious: Yes (Other)
  Sender: INCYTE
  Company Number: US-INCYTE CORPORATION-2025IN002992

PATIENT
  Age: 70 Year
  Weight: 85.8 kg

DRUGS (2)
  1. JAKAFI [Suspect]
     Active Substance: RUXOLITINIB
     Indication: Myelofibrosis
     Dosage: 25 MILLIGRAM, BID
  2. PELABRESIB [Suspect]
     Active Substance: PELABRESIB
     Indication: Myelofibrosis
     Dosage: 125 MILLIGRAM, QD X 14 DAYS FOLLOWED BY A 7-DAY BREAK (21-DAY CYCLE)

REACTIONS (1)
  - Blast cell count increased [Recovered/Resolved]
